FAERS Safety Report 4746582-1 (Version None)
Quarter: 2005Q3

REPORT INFORMATION
  Report Type: 
  Country: None (occurrence: None)
  Receive Date: 20050816
  Receipt Date: 20050816
  Transmission Date: 20060218
  Serious: No
  Sender: FDA-Public Use
  Company Number: None

PATIENT

DRUGS (2)
  1. INDERAL LA [Suspect]
  2. PROPRANOLOL 60 + 80 MG BY PLIVA [Suspect]

REACTIONS (1)
  - MEDICATION ERROR [None]
